FAERS Safety Report 9248464 (Version 1)
Quarter: 2013Q2

REPORT INFORMATION
  Report Type: Spontaneous
  Country: US (occurrence: US)
  Receive Date: 20130423
  Receipt Date: 20130423
  Transmission Date: 20140414
  Serious: Yes (Hospitalization, Other)
  Sender: FDA-Public Use
  Company Number: US-BAYER-2013-050718

PATIENT
  Age: 68 Year
  Sex: Male
  Weight: 92.08 kg

DRUGS (6)
  1. XARELTO [Suspect]
     Indication: CEREBROVASCULAR ACCIDENT PROPHYLAXIS
     Dosage: 20 MG, UNK
     Route: 048
     Dates: end: 201304
  2. XARELTO [Interacting]
     Indication: ATRIAL FIBRILLATION
     Route: 048
     Dates: start: 20130307, end: 201303
  3. XARELTO [Interacting]
     Indication: CEREBROVASCULAR ACCIDENT PROPHYLAXIS
     Route: 048
     Dates: start: 201303, end: 201304
  4. ACETYLSALICYLIC ACID [Interacting]
     Indication: ANTICOAGULANT THERAPY
     Dosage: UNK
     Dates: start: 2013
  5. LIPITOR [Concomitant]
     Dosage: 80 MG, UNK
     Route: 048
  6. AMIODARONE [Concomitant]
     Dosage: 200 MG, UNK
     Route: 065

REACTIONS (6)
  - Thrombotic thrombocytopenic purpura [Not Recovered/Not Resolved]
  - Epistaxis [Not Recovered/Not Resolved]
  - Blood creatinine increased [Not Recovered/Not Resolved]
  - Chromaturia [Unknown]
  - Wrong technique in drug usage process [Recovered/Resolved]
  - Incorrect dose administered [Recovered/Resolved]
